FAERS Safety Report 12925693 (Version 1)
Quarter: 2016Q4

REPORT INFORMATION
  Report Type: Spontaneous
  Country: US (occurrence: US)
  Receive Date: 20161108
  Receipt Date: 20161108
  Transmission Date: 20170207
  Serious: No
  Sender: FDA-Public Use
  Company Number: US-SA-2016SA194884

PATIENT
  Age: 43 Year
  Sex: Male

DRUGS (20)
  1. CLOPIDOGREL [Concomitant]
     Active Substance: CLOPIDOGREL BISULFATE
  2. GLUCAGON. [Concomitant]
     Active Substance: GLUCAGON
  3. HUMULIN N [Concomitant]
     Active Substance: INSULIN HUMAN
  4. HUMALOG [Concomitant]
     Active Substance: INSULIN LISPRO
  5. HUMULIN R [Concomitant]
     Active Substance: INSULIN HUMAN
  6. GEODON [Concomitant]
     Active Substance: ZIPRASIDONE HYDROCHLORIDE\ZIPRASIDONE MESYLATE
  7. A-HYDROCORT [Concomitant]
     Active Substance: HYDROCORTISONE SODIUM SUCCINATE
  8. LORAZEPAM. [Concomitant]
     Active Substance: LORAZEPAM
  9. METOCLOPRAMIDE. [Concomitant]
     Active Substance: METOCLOPRAMIDE
  10. PRALUENT [Suspect]
     Active Substance: ALIROCUMAB
     Indication: HYPERLIPIDAEMIA
     Route: 065
  11. ALIROCUMAB PREFILLED PEN [Concomitant]
     Active Substance: ALIROCUMAB
     Indication: HYPERLIPIDAEMIA
  12. METOPROLOL TARTRATE. [Concomitant]
     Active Substance: METOPROLOL TARTRATE
  13. RANITIDINE. [Concomitant]
     Active Substance: RANITIDINE
  14. SYNTHROID [Concomitant]
     Active Substance: LEVOTHYROXINE SODIUM
  15. LANTUS [Concomitant]
     Active Substance: INSULIN GLARGINE
  16. LORAZEPAM. [Concomitant]
     Active Substance: LORAZEPAM
  17. PANTOPRAZOLE [Concomitant]
     Active Substance: PANTOPRAZOLE SODIUM
  18. FAMOTIDINE. [Concomitant]
     Active Substance: FAMOTIDINE
  19. MOMETASONE [Concomitant]
     Active Substance: MOMETASONE
  20. NITROSTAT [Concomitant]
     Active Substance: NITROGLYCERIN
     Route: 058

REACTIONS (1)
  - Rash [Unknown]
